FAERS Safety Report 5213522-0 (Version None)
Quarter: 2007Q1

REPORT INFORMATION
  Report Type: 
  Country: None (occurrence: None)
  Receive Date: 20070119
  Receipt Date: 20070110
  Transmission Date: 20070707
  Serious: Yes (Hospitalization)
  Sender: FDA-Public Use
  Company Number: IE-ROCHE-470791

PATIENT
  Age: 26 Year
  Sex: Female

DRUGS (8)
  1. DIAZEPAM [Suspect]
     Indication: DRUG USE FOR UNKNOWN INDICATION
     Dosage: OVERDOSE
     Route: 048
  2. VIRACEPT [Suspect]
     Indication: PROPHYLAXIS
     Dosage: OVERDOSE
     Route: 048
  3. VIRACEPT [Suspect]
     Route: 048
  4. STAVUDINE [Suspect]
     Indication: PROPHYLAXIS
     Dosage: OVERDOSE
     Route: 048
  5. STAVUDINE [Suspect]
     Route: 048
  6. LAMIVUDINE [Suspect]
     Indication: PROPHYLAXIS
     Dosage: OVERDOSE
     Route: 048
  7. LAMIVUDINE [Suspect]
     Route: 048
  8. ORAL CONTRACEPTIVE NOS [Concomitant]

REACTIONS (4)
  - GLASGOW COMA SCALE ABNORMAL [None]
  - HYPOTENSION [None]
  - HYPOTHERMIA [None]
  - INTENTIONAL OVERDOSE [None]
